FAERS Safety Report 8870757 (Version 1)
Quarter: 2012Q4

REPORT INFORMATION
  Report Type: Spontaneous
  Country: US (occurrence: None)
  Receive Date: 20121026
  Receipt Date: 20121026
  Transmission Date: 20130627
  Serious: No
  Sender: FDA-Public Use
  Company Number: None

PATIENT
  Age: 30 Year
  Sex: Female
  Weight: 81.65 kg

DRUGS (1)
  1. AZITHROMYCIN [Suspect]
     Indication: SINUS INFECTION
     Dates: start: 20121019, end: 20121021

REACTIONS (4)
  - Dizziness [None]
  - Paraesthesia [None]
  - Headache [None]
  - Disturbance in attention [None]
